FAERS Safety Report 6515360-5 (Version None)
Quarter: 2009Q4

REPORT INFORMATION
  Report Type: 
  Country: None (occurrence: None)
  Receive Date: 20091223
  Receipt Date: 20091216
  Transmission Date: 20100525
  Serious: Yes (Death, Hospitalization)
  Sender: FDA-Public Use
  Company Number: IT-BRISTOL-MYERS SQUIBB COMPANY-14814909

PATIENT
  Age: 72 Year
  Sex: Male
  Weight: 81 kg

DRUGS (10)
  1. CISPLATIN [Suspect]
     Indication: NON-SMALL CELL LUNG CANCER
     Route: 042
     Dates: start: 20090819, end: 20091019
  2. ALIMTA [Suspect]
     Indication: NON-SMALL CELL LUNG CANCER
     Route: 042
     Dates: start: 20090819, end: 20091019
  3. FOLIC ACID [Concomitant]
     Dates: start: 20090812, end: 20090930
  4. VITAMIN B-12 [Concomitant]
     Dates: start: 20090812, end: 20090930
  5. DEXAMETHASONE TAB [Concomitant]
     Indication: PROPHYLAXIS
     Dates: start: 20090819, end: 20090930
  6. DELTACORTENE [Concomitant]
     Dates: start: 20090811, end: 20091008
  7. LYRICA [Concomitant]
     Dates: start: 20090811, end: 20091018
  8. LYRICA [Concomitant]
     Dates: start: 20090811
  9. OXYCONTIN [Concomitant]
     Indication: PAIN IN EXTREMITY
     Dates: start: 20090811, end: 20091018
  10. LANSOPRAZOLE [Concomitant]
     Indication: PROPHYLAXIS
     Dates: start: 20090811, end: 20091018

REACTIONS (2)
  - MALIGNANT NEOPLASM PROGRESSION [None]
  - PULMONARY EMBOLISM [None]
